FAERS Safety Report 25503182 (Version 1)
Quarter: 2025Q3

REPORT INFORMATION
  Report Type: Spontaneous
  Country: US (occurrence: US)
  Receive Date: 20250702
  Receipt Date: 20250702
  Transmission Date: 20251020
  Serious: Yes (Other)
  Sender: ALKEM
  Company Number: US-ALKEM LABORATORIES LIMITED-US-ALKEM-2025-03152

PATIENT
  Age: 76 Year
  Sex: Female

DRUGS (1)
  1. LURASIDONE [Suspect]
     Active Substance: LURASIDONE
     Indication: Bipolar II disorder
     Dosage: 40 MILLIGRAM, QD
     Route: 065

REACTIONS (1)
  - Tardive dyskinesia [Recovering/Resolving]
